FAERS Safety Report 5092686-6 (Version None)
Quarter: 2006Q3

REPORT INFORMATION
  Report Type: 
  Country: None (occurrence: None)
  Receive Date: 20060825
  Receipt Date: 20060809
  Transmission Date: 20061208
  Serious: Yes (Death)
  Sender: FDA-Public Use
  Company Number: 0410009

PATIENT
  Age: 1 Year
  Sex: Male
  Weight: 3.6 kg

DRUGS (1)
  1. NITISINONE [Suspect]
     Indication: AMINO ACID METABOLISM DISORDER
     Dosage: 1 MG/KG MG/KG/DAY
     Dates: start: 20040303, end: 20040408

REACTIONS (1)
  - HEPATIC FAILURE [None]
